FAERS Safety Report 9681544 (Version 2)
Quarter: 2013Q4

REPORT INFORMATION
  Report Type: Spontaneous
  Country: AU (occurrence: AU)
  Receive Date: 20131111
  Receipt Date: 20131121
  Transmission Date: 20140711
  Serious: No
  Sender: FDA-Public Use
  Company Number: AU-B.I. PHARMACEUTICALS,INC./RIDGEFIELD-2013-BI-35728AU

PATIENT
  Age: 66 Year
  Sex: Female

DRUGS (1)
  1. LINAGLIPTIN [Suspect]

REACTIONS (10)
  - Urticaria [Unknown]
  - Malaise [Unknown]
  - Nausea [Unknown]
  - Pruritus [Unknown]
  - Myalgia [Unknown]
  - Limb discomfort [Unknown]
  - Weight decreased [Unknown]
  - Vomiting [Unknown]
  - Adverse drug reaction [Unknown]
  - Drug ineffective [Unknown]
